FAERS Safety Report 23705926 (Version 1)
Quarter: 2024Q2

REPORT INFORMATION
  Report Type: Spontaneous
  Country: US (occurrence: None)
  Receive Date: 20240403
  Receipt Date: 20240403
  Transmission Date: 20240716
  Serious: Yes (Hospitalization)
  Sender: FDA-Public Use
  Company Number: None

PATIENT
  Age: 72 Year
  Sex: 0
  Weight: 93.9 kg

DRUGS (2)
  1. GAMMAKED [Suspect]
     Active Substance: HUMAN IMMUNOGLOBULIN G
     Indication: Myasthenia gravis
     Dosage: 160 G GRAM (S)  OVER 5 DAYAS INTRAVENOUS?
     Route: 042
     Dates: start: 20240205, end: 20240210
  2. GAMMAKED [Suspect]
     Active Substance: HUMAN IMMUNOGLOBULIN G
     Dosage: 20 GRAM OVER 5 DAYS INTRAVENOUS?
     Route: 042
     Dates: start: 20240205, end: 20240210

REACTIONS (3)
  - Therapy interrupted [None]
  - Nonspecific reaction [None]
  - Atrial fibrillation [None]

NARRATIVE: CASE EVENT DATE: 20240227
